FAERS Safety Report 10404640 (Version 1)
Quarter: 2014Q2

REPORT INFORMATION
  Report Type: Spontaneous
  Country: US (occurrence: None)
  Receive Date: 20140530
  Receipt Date: 20140530
  Transmission Date: 20141212
  Serious: Yes (Other)
  Sender: FDA-Public Use
  Company Number: 397713

PATIENT
  Age: 62 Year
  Sex: Female
  Weight: 73.5 kg

DRUGS (9)
  1. PREMPRO [Suspect]
     Indication: PRODUCT USED FOR UNKNOWN INDICATION
     Route: 048
  2. CORTISONE (CORTISONE) [Concomitant]
  3. ACTIVELLA [Suspect]
     Indication: HOT FLUSH
     Dates: start: 20091020, end: 20120607
  4. ACTIVELLA [Suspect]
     Indication: HYPERHIDROSIS
     Dates: start: 20091020, end: 20120607
  5. PROVERA [Suspect]
     Indication: PRODUCT USED FOR UNKNOWN INDICATION
     Route: 048
     Dates: start: 20010601, end: 20020702
  6. VIVELLE DOT (ESTRADIOL) TRANS-THERAPEUTIC-SYSTEM [Suspect]
     Indication: MENOPAUSE
     Route: 062
     Dates: start: 20010921, end: 20020711
  7. VIVELLE DOT (ESTRADIOL) TRANS-THERAPEUTIC-SYSTEM [Suspect]
     Indication: HOT FLUSH
     Route: 062
     Dates: start: 20010921, end: 20020711
  8. PROMETRIUM (PROGESTERONE) (CAPSULE) [Suspect]
     Indication: MENOPAUSE
     Route: 048
     Dates: start: 20020726, end: 20090310
  9. CLIMARA (ESTRADIOL) [Suspect]
     Indication: PRODUCT USED FOR UNKNOWN INDICATION
     Route: 062
     Dates: start: 20020726, end: 20021112

REACTIONS (1)
  - Breast cancer metastatic [None]
